FAERS Safety Report 11660797 (Version 2)
Quarter: 2015Q4

REPORT INFORMATION
  Report Type: Spontaneous
  Country: None (occurrence: FR)
  Receive Date: 20151026
  Receipt Date: 20151029
  Transmission Date: 20160304
  Serious: Yes (Congenital Anomaly)
  Sender: FDA-Public Use
  Company Number: FR-MEDAC PHARMA, INC.-1043378

PATIENT
  Age: 4 Year
  Sex: Male

DRUGS (1)
  1. METOJECT [Suspect]
     Active Substance: METHOTREXATE SODIUM

REACTIONS (2)
  - Autism [Recovered/Resolved with Sequelae]
  - Exposure via father [Unknown]

NARRATIVE: CASE EVENT DATE: 2012
